FAERS Safety Report 4922518-5 (Version None)
Quarter: 2006Q1

REPORT INFORMATION
  Report Type: 
  Country: None (occurrence: None)
  Receive Date: 20060224
  Receipt Date: 20060202
  Transmission Date: 20060701
  Serious: Yes (Hospitalization)
  Sender: FDA-Public Use
  Company Number: SE-ROCHE-434790

PATIENT
  Age: 68 Year
  Sex: Female

DRUGS (3)
  1. XELODA [Suspect]
     Route: 048
     Dates: start: 20051201, end: 20051214
  2. BETAPRED [Suspect]
     Route: 048
     Dates: start: 20051201, end: 20051214
  3. TAXOTERE [Concomitant]
     Route: 042

REACTIONS (1)
  - LARGE INTESTINE PERFORATION [None]
